FAERS Safety Report 4510620-1 (Version None)
Quarter: 2004Q4

REPORT INFORMATION
  Report Type: 
  Country: None (occurrence: None)
  Receive Date: 20041124
  Receipt Date: 20040712
  Transmission Date: 20050328
  Serious: Yes (Other)
  Sender: FDA-Public Use
  Company Number: US-ABBOTT-04P-163-0266911-00

PATIENT
  Sex: Male

DRUGS (10)
  1. RITONAVIR SOFT GELATIN CAPSULES [Suspect]
     Indication: HIV INFECTION
     Route: 048
     Dates: start: 20040421, end: 20040616
  2. RITONAVIR SOFT GELATIN CAPSULES [Suspect]
     Route: 048
     Dates: start: 20040723
  3. TIPRANAVIR [Concomitant]
     Indication: HIV INFECTION
     Route: 048
     Dates: start: 20040421, end: 20040616
  4. TIPRANAVIR [Concomitant]
     Route: 048
     Dates: start: 20040723
  5. DAPSONE [Concomitant]
     Indication: DRUG USE FOR UNKNOWN INDICATION
  6. LEVOTHYROXINE SODIUM [Concomitant]
     Indication: DRUG USE FOR UNKNOWN INDICATION
  7. T-20 (ENFUVIRTIDE) [Concomitant]
     Indication: HIV INFECTION
     Route: 058
     Dates: start: 20040421
  8. T-20 (ENFUVIRTIDE) [Concomitant]
     Route: 058
     Dates: start: 20040723
  9. EFAVIRENZ [Concomitant]
     Indication: HIV INFECTION
     Route: 048
     Dates: start: 20040421
  10. EFAVIRENZ [Concomitant]
     Route: 048
     Dates: start: 20040723

REACTIONS (6)
  - HEPATITIS B [None]
  - IMMUNE RECONSTITUTION SYNDROME [None]
  - IMMUNE SYSTEM DISORDER [None]
  - JAUNDICE [None]
  - LIVER FUNCTION TEST ABNORMAL [None]
  - LYMPHADENOPATHY [None]
